FAERS Safety Report 19072556 (Version 2)
Quarter: 2021Q3

REPORT INFORMATION
  Report Type: Spontaneous
  Country: US (occurrence: US)
  Receive Date: 20210330
  Receipt Date: 20210722
  Transmission Date: 20211014
  Serious: No
  Sender: FDA-Public Use
  Company Number: NVSC2021US071708

PATIENT
  Age: 56 Year
  Sex: Male
  Weight: 126 kg

DRUGS (2)
  1. VOTRIENT [Suspect]
     Active Substance: PAZOPANIB HYDROCHLORIDE
     Indication: LIPOSARCOMA METASTATIC
     Dosage: 800 MG, QD
     Route: 048
     Dates: start: 20210225, end: 20210322
  2. VOTRIENT [Suspect]
     Active Substance: PAZOPANIB HYDROCHLORIDE
     Dosage: 400 UNK
     Route: 048
     Dates: start: 20210203, end: 20210423

REACTIONS (6)
  - Drug tolerance decreased [Unknown]
  - Blood pressure increased [Unknown]
  - Weight decreased [Unknown]
  - Hypertension [Recovering/Resolving]
  - Liver function test increased [Unknown]
  - Diarrhoea [Recovering/Resolving]

NARRATIVE: CASE EVENT DATE: 20210301
